FAERS Safety Report 12293966 (Version 1)
Quarter: 2016Q2

REPORT INFORMATION
  Report Type: Spontaneous
  Country: FR (occurrence: FR)
  Receive Date: 20160422
  Receipt Date: 20160422
  Transmission Date: 20160815
  Serious: Yes (Hospitalization)
  Sender: FDA-Public Use
  Company Number: FR-ROCHE-1745370

PATIENT
  Age: 65 Year
  Sex: Male

DRUGS (4)
  1. HERCEPTIN [Suspect]
     Active Substance: TRASTUZUMAB
     Indication: OESOPHAGEAL NEOPLASM
     Route: 042
     Dates: start: 20150923, end: 20160120
  2. OXALIPLATINE [Concomitant]
     Active Substance: OXALIPLATIN
     Indication: OESOPHAGEAL NEOPLASM
     Route: 042
     Dates: start: 20150624, end: 20160106
  3. FLUOROURACILE [Concomitant]
     Active Substance: FLUOROURACIL
     Indication: OESOPHAGEAL NEOPLASM
     Route: 042
     Dates: start: 20150624, end: 20160106
  4. LEVOFOLINATE [Concomitant]
     Active Substance: LEVOLEUCOVORIN CALCIUM
     Indication: OESOPHAGEAL NEOPLASM
     Route: 042
     Dates: start: 20150624, end: 20160106

REACTIONS (2)
  - Arterial stenosis [Unknown]
  - Pericardial effusion [Recovering/Resolving]

NARRATIVE: CASE EVENT DATE: 20160304
